FAERS Safety Report 7931573 (Version 2)
Quarter: 2016Q2

REPORT INFORMATION
  Report Type: Other
  Country: PL (occurrence: PL)
  Receive Date: 20110505
  Receipt Date: 20160418
  Transmission Date: 20160815
  Serious: Yes (Hospitalization, Other)
  Sender: FDA-Public Use
  Company Number: PL-ACTELION-A-CH2011-47789

PATIENT
  Age: 37 Year
  Sex: Male
  Weight: 66 kg

DRUGS (10)
  1. MILURIT [Concomitant]
     Active Substance: ALLOPURINOL
     Dosage: 300 MG, OD
     Route: 048
  2. LETROX [Concomitant]
     Active Substance: LEVOTHYROXINE SODIUM
     Dosage: 25 ?G, OD
     Route: 048
  3. AMIODARONE [Concomitant]
     Active Substance: AMIODARONE
     Dosage: 200 MG, OD
     Route: 048
  4. SINTROM [Suspect]
     Active Substance: ACENOCOUMAROL
     Indication: PRODUCT USED FOR UNKNOWN INDICATION
     Route: 065
  5. ALFADIOL [Concomitant]
     Active Substance: ALFACALCIDOL
  6. FUROSEMID [Concomitant]
     Active Substance: FUROSEMIDE
  7. TRACLEER [Suspect]
     Active Substance: BOSENTAN
     Dosage: 62.5 MG, BID
     Route: 048
     Dates: start: 20100621, end: 201007
  8. NEBILET [Concomitant]
     Active Substance: NEBIVOLOL
  9. TRACLEER [Suspect]
     Active Substance: BOSENTAN
     Indication: PULMONARY ARTERIAL HYPERTENSION
     Dosage: 125 MG, BID
     Route: 048
     Dates: start: 201007, end: 20110225
  10. SPIRONOL [Concomitant]
     Active Substance: SPIRONOLACTONE

REACTIONS (8)
  - Right ventricular failure [Unknown]
  - Jaundice [Recovered/Resolved]
  - Electrocardiogram QT prolonged [Unknown]
  - Aspartate aminotransferase increased [Recovered/Resolved]
  - Arrhythmia [Unknown]
  - Alanine aminotransferase increased [Recovered/Resolved]
  - Hepatic enzyme abnormal [Recovered/Resolved]
  - Blood bilirubin increased [Recovered/Resolved]

NARRATIVE: CASE EVENT DATE: 20110225
